FAERS Safety Report 4982215-7 (Version None)
Quarter: 2006Q2

REPORT INFORMATION
  Report Type: 
  Country: None (occurrence: None)
  Receive Date: 20060419
  Receipt Date: 20060328
  Transmission Date: 20061013
  Serious: Yes (Hospitalization)
  Sender: FDA-Public Use
  Company Number: US200603006932

PATIENT
  Age: 64 Year
  Sex: Male

DRUGS (4)
  1. HUMALOG [Suspect]
     Indication: DIABETES MELLITUS
  2. HUMULIN N [Suspect]
     Indication: DIABETES MELLITUS
  3. HUMULIN R [Suspect]
     Indication: DIABETES MELLITUS
  4. HUMULIN R [Suspect]
     Indication: DIABETES MELLITUS

REACTIONS (10)
  - ABSCESS NECK [None]
  - BLOOD GLUCOSE DECREASED [None]
  - GASTROINTESTINAL TUBE INSERTION [None]
  - INCORRECT DOSE ADMINISTERED [None]
  - INTERVERTEBRAL DISC DISORDER [None]
  - OVERDOSE [None]
  - PHARMACEUTICAL PRODUCT COMPLAINT [None]
  - PULMONARY OEDEMA [None]
  - SCAR [None]
  - SPEECH DISORDER [None]
